FAERS Safety Report 21330440 (Version 1)
Quarter: 2022Q3

REPORT INFORMATION
  Report Type: Spontaneous
  Country: US (occurrence: US)
  Receive Date: 20220913
  Receipt Date: 20220913
  Transmission Date: 20221027
  Serious: No
  Sender: FDA-Public Use
  Company Number: US-009507513-2208USA007728

PATIENT
  Sex: Male

DRUGS (10)
  1. TICE BCG [Suspect]
     Active Substance: BACILLUS CALMETTE-GUERIN SUBSTRAIN TICE LIVE ANTIGEN
     Indication: Bladder cancer
     Dosage: UNK
     Route: 043
  2. DOXIL [Concomitant]
     Active Substance: DOXORUBICIN HYDROCHLORIDE
     Indication: Lung neoplasm malignant
  3. FINASTERIDE [Concomitant]
     Active Substance: FINASTERIDE
  4. TAMSULOSIN [Concomitant]
     Active Substance: TAMSULOSIN
  5. METOPROLOL [Concomitant]
     Active Substance: METOPROLOL
  6. FUROSEMIDE [Concomitant]
     Active Substance: FUROSEMIDE
  7. ELIQUIS [Concomitant]
     Active Substance: APIXABAN
  8. MAGNESIUM [Concomitant]
     Active Substance: MAGNESIUM
  9. BUDESONIDE [Concomitant]
     Active Substance: BUDESONIDE
  10. BROVANA [Concomitant]
     Active Substance: ARFORMOTEROL TARTRATE

REACTIONS (3)
  - Drug intolerance [Unknown]
  - Mood altered [Unknown]
  - Urinary tract infection [Unknown]
